FAERS Safety Report 7778049-0 (Version None)
Quarter: 2011Q3

REPORT INFORMATION
  Report Type: 
  Country: None (occurrence: None)
  Receive Date: 20110926
  Receipt Date: 20110921
  Transmission Date: 20111222
  Serious: Yes (Hospitalization)
  Sender: FDA-Public Use
  Company Number: US-VERTEX PHARMACEUTICALS INC.-AE-2011-001703

PATIENT
  Sex: Female

DRUGS (3)
  1. RIBAVIRIN [Concomitant]
     Indication: HEPATITIS C
     Dates: end: 20110920
  2. INCIVEK [Suspect]
     Indication: HEPATITIS C
     Dates: end: 20110920
  3. PEGINTERFERON [Concomitant]
     Indication: HEPATITIS C
     Dates: end: 20110920

REACTIONS (5)
  - ABDOMINAL DISCOMFORT [None]
  - CONVULSION [None]
  - CONSTIPATION [None]
  - CHEST PAIN [None]
  - MOOD SWINGS [None]
